FAERS Safety Report 22611462 (Version 1)
Quarter: 2023Q2

REPORT INFORMATION
  Report Type: Spontaneous
  Country: US (occurrence: US)
  Receive Date: 20230616
  Receipt Date: 20230616
  Transmission Date: 20230722
  Serious: Yes (Other)
  Sender: FDA-Public Use
  Company Number: US-BRISTOL-MYERS SQUIBB COMPANY-2023-081181

PATIENT
  Age: 29 Year
  Sex: Male

DRUGS (5)
  1. TRIAMCINOLONE ACETONIDE [Suspect]
     Active Substance: TRIAMCINOLONE ACETONIDE
     Indication: Eye inflammation
     Route: 057
  2. PREDNISOLONE [Suspect]
     Active Substance: PREDNISOLONE
     Indication: Eye inflammation
     Route: 048
  3. DEXAMETHASONE [Suspect]
     Active Substance: DEXAMETHASONE
     Indication: Eye inflammation
     Route: 061
  4. NEOMYCIN [Suspect]
     Active Substance: NEOMYCIN
     Indication: Eye inflammation
     Route: 061
  5. POLYMYXIN [Suspect]
     Active Substance: POLYMYXIN
     Indication: Eye inflammation
     Route: 061

REACTIONS (2)
  - Keratitis bacterial [Recovering/Resolving]
  - Off label use [Unknown]
